FAERS Safety Report 20369627 (Version 1)
Quarter: 2022Q1

REPORT INFORMATION
  Report Type: Spontaneous
  Country: US (occurrence: US)
  Receive Date: 20220124
  Receipt Date: 20220124
  Transmission Date: 20220423
  Serious: No
  Sender: FDA-Public Use
  Company Number: US-SA-SAC20220121000088

PATIENT
  Age: 36 Year
  Sex: Female

DRUGS (33)
  1. DUPIXENT [Suspect]
     Active Substance: DUPILUMAB
     Indication: Asthma
     Dosage: 300 MG, QOW
     Route: 058
     Dates: start: 2019
  2. MELATONIN [Concomitant]
     Active Substance: MELATONIN
  3. VALERIAN [Concomitant]
     Active Substance: VALERIAN
  4. ELIDEL [Concomitant]
     Active Substance: PIMECROLIMUS
  5. DERMOTIC [Concomitant]
     Active Substance: FLUOCINOLONE ACETONIDE
  6. FLUTICASONE PROPIONATE [Concomitant]
     Active Substance: FLUTICASONE PROPIONATE
  7. ZYRTEC [Concomitant]
     Active Substance: CETIRIZINE HYDROCHLORIDE
  8. FLONASE ALLERGY RELIEF [Concomitant]
     Active Substance: FLUTICASONE PROPIONATE
  9. PEPCID [Concomitant]
     Active Substance: FAMOTIDINE
  10. MIDODRINE HYDROCHLORIDE [Concomitant]
     Active Substance: MIDODRINE HYDROCHLORIDE
  11. CORLANOR [Concomitant]
     Active Substance: IVABRADINE HYDROCHLORIDE
  12. ALBUTEROL SULFATE [Concomitant]
     Active Substance: ALBUTEROL SULFATE
  13. SINGULAIR [Concomitant]
     Active Substance: MONTELUKAST SODIUM
  14. INCRUSE ELLIPTA [Concomitant]
     Active Substance: UMECLIDINIUM BROMIDE
  15. DULERA [Concomitant]
     Active Substance: FORMOTEROL FUMARATE DIHYDRATE\MOMETASONE FUROATE
  16. QVAR REDIHALER [Concomitant]
     Active Substance: BECLOMETHASONE DIPROPIONATE
  17. HYDROXYZINE HYDROCHLORIDE [Concomitant]
     Active Substance: HYDROXYZINE HYDROCHLORIDE
  18. ADDERALL [Concomitant]
     Active Substance: AMPHETAMINE ASPARTATE\AMPHETAMINE SULFATE\DEXTROAMPHETAMINE SACCHARATE\DEXTROAMPHETAMINE SULFATE
  19. ABILIFY [Concomitant]
     Active Substance: ARIPIPRAZOLE
  20. BUSPIRONE HCL [Concomitant]
     Active Substance: BUSPIRONE HYDROCHLORIDE
  21. WELLBUTRIN XL [Concomitant]
     Active Substance: BUPROPION HYDROCHLORIDE
  22. CELECOXIB [Concomitant]
     Active Substance: CELECOXIB
  23. TIZANIDINE HYDROCHLORIDE [Concomitant]
     Active Substance: TIZANIDINE HYDROCHLORIDE
  24. ONDANSETRON HCL [Concomitant]
     Active Substance: ONDANSETRON HYDROCHLORIDE
  25. VOLTAREN ARTHRITIS PAIN [Concomitant]
     Active Substance: DICLOFENAC SODIUM
  26. NAPROXEN [Concomitant]
     Active Substance: NAPROXEN
  27. MIGRANAL [Concomitant]
     Active Substance: DIHYDROERGOTAMINE MESYLATE
  28. ZOMIG [Concomitant]
     Active Substance: ZOLMITRIPTAN
  29. TOPIRAMATE [Concomitant]
     Active Substance: TOPIRAMATE
  30. MODERNA COVID-19 VACCINE [Concomitant]
     Active Substance: ELASOMERAN
  31. MAGNESIUM [Concomitant]
     Active Substance: MAGNESIUM
  32. FERROUS SULFATE [Concomitant]
     Active Substance: FERROUS SULFATE
  33. ALBUTEROL SULFATE [Concomitant]
     Active Substance: ALBUTEROL SULFATE

REACTIONS (1)
  - COVID-19 [Unknown]

NARRATIVE: CASE EVENT DATE: 20220109
